FAERS Safety Report 21404824 (Version 1)
Quarter: 2022Q3

REPORT INFORMATION
  Report Type: Spontaneous
  Country: US (occurrence: None)
  Receive Date: 20220930
  Receipt Date: 20220930
  Transmission Date: 20221027
  Serious: No
  Sender: FDA-Public Use
  Company Number: None

PATIENT
  Age: 74 Year
  Sex: Male
  Weight: 108 kg

DRUGS (2)
  1. ERTAPENEM [Suspect]
     Active Substance: ERTAPENEM
     Indication: Klebsiella infection
     Dosage: FREQUENCY : DAILY;?
     Route: 042
     Dates: start: 20220714, end: 20220720
  2. ERTAPENEM [Suspect]
     Active Substance: ERTAPENEM
     Indication: Urinary tract infection

REACTIONS (2)
  - Muscular weakness [None]
  - Fatigue [None]

NARRATIVE: CASE EVENT DATE: 20220727
